FAERS Safety Report 18534733 (Version 1)
Quarter: 2020Q4

REPORT INFORMATION
  Report Type: Spontaneous
  Country: US (occurrence: US)
  Receive Date: 20201123
  Receipt Date: 20201123
  Transmission Date: 20210114
  Serious: No
  Sender: FDA-Public Use
  Company Number: US-STRIDES ARCOLAB LIMITED-2020SP011766

PATIENT
  Age: 38 Year
  Sex: Female

DRUGS (8)
  1. ALLEGRA [Suspect]
     Active Substance: FEXOFENADINE HYDROCHLORIDE
     Indication: PRODUCT USED FOR UNKNOWN INDICATION
     Dosage: UNK
     Route: 065
  2. CROMOLYN [CROMOGLICIC ACID] [Suspect]
     Active Substance: CROMOLYN
     Indication: PRODUCT USED FOR UNKNOWN INDICATION
     Dosage: UNK
     Route: 065
  3. MONTELUKAST [Suspect]
     Active Substance: MONTELUKAST SODIUM
     Indication: PRODUCT USED FOR UNKNOWN INDICATION
     Dosage: UNK
     Route: 065
  4. ONABOTULINUMTOXINA [Suspect]
     Active Substance: ONABOTULINUMTOXINA
     Indication: MIGRAINE
     Dosage: 175 UNITS DURING THE TIME OF CONCEPTION (NEAR/FIRST TRIMESTER)
     Route: 065
  5. RANITIDINE. [Suspect]
     Active Substance: RANITIDINE
     Indication: PRODUCT USED FOR UNKNOWN INDICATION
     Dosage: UNK
     Route: 065
  6. ONABOTULINUMTOXINA [Suspect]
     Active Substance: ONABOTULINUMTOXINA
     Dosage: 175 UNITS AT 37 WEEKS OF GESTATION
     Route: 065
  7. ONABOTULINUMTOXINA [Suspect]
     Active Substance: ONABOTULINUMTOXINA
     Dosage: 175 UNITS AT 12 WEEKS OF GESTATION
     Route: 065
  8. ONABOTULINUMTOXINA [Suspect]
     Active Substance: ONABOTULINUMTOXINA
     Dosage: 175 UNITS AT 25 WEEKS OF GESTATION
     Route: 065

REACTIONS (1)
  - Maternal exposure during pregnancy [Unknown]
